FAERS Safety Report 6311821-2 (Version None)
Quarter: 2009Q3

REPORT INFORMATION
  Report Type: 
  Country: None (occurrence: None)
  Receive Date: 20090817
  Receipt Date: 20090206
  Transmission Date: 20100115
  Serious: No
  Sender: FDA-Public Use
  Company Number: US-B.I. PHARMACEUTICALS,INC./RIDGEFIELD-2009-BP-09625BP

PATIENT

DRUGS (3)
  1. VIRAMUNE [Suspect]
  2. ABACAVIR [Suspect]
  3. 3TC [Suspect]

REACTIONS (1)
  - DRUG RESISTANCE [None]
